FAERS Safety Report 4927780-0 (Version None)
Quarter: 2006Q1

REPORT INFORMATION
  Report Type: 
  Country: None (occurrence: None)
  Receive Date: 20060228
  Receipt Date: 20051116
  Transmission Date: 20060701
  Serious: Yes (Disabling)
  Sender: FDA-Public Use
  Company Number: US-GLAXOSMITHKLINE-A0582598A

PATIENT
  Age: 49 Year
  Weight: 67.3 kg

DRUGS (10)
  1. ZIAGEN [Suspect]
     Indication: HIV INFECTION
     Route: 048
     Dates: start: 20050925, end: 20051009
  2. KALETRA [Concomitant]
  3. VIDEX [Concomitant]
  4. D4T [Concomitant]
  5. HORMONE REPLACEMENT THERAPY [Concomitant]
  6. SPIRONOLACTONE [Concomitant]
  7. PREMARIN [Concomitant]
  8. TRILAFON [Concomitant]
  9. COGENTIN [Concomitant]
  10. PAXIL [Concomitant]

REACTIONS (6)
  - GASTROINTESTINAL DISORDER [None]
  - HEADACHE [None]
  - HYPERSENSITIVITY [None]
  - MALAISE [None]
  - NAUSEA [None]
  - PYREXIA [None]
